FAERS Safety Report 20897497 (Version 2)
Quarter: 2023Q4

REPORT INFORMATION
  Report Type: Spontaneous
  Country: CA (occurrence: CA)
  Receive Date: 20220531
  Receipt Date: 20231226
  Transmission Date: 20240109
  Serious: Yes (Hospitalization, Other)
  Sender: FDA-Public Use
  Company Number: CA-NAPPMUNDI-GBR-2022-0098396

PATIENT
  Age: 76 Year
  Sex: Male

DRUGS (2)
  1. OXYCODONE HYDROCHLORIDE [Suspect]
     Active Substance: OXYCODONE HYDROCHLORIDE
     Indication: Product used for unknown indication
     Dosage: UNKNOWN
     Route: 065
  2. OMALIZUMAB [Suspect]
     Active Substance: OMALIZUMAB
     Indication: Asthma
     Dosage: 375 MILLIGRAM, QOW (1 EVERY 2 WEEKS)
     Route: 058

REACTIONS (11)
  - Back pain [Recovering/Resolving]
  - Drug hypersensitivity [Recovering/Resolving]
  - Erythema [Recovering/Resolving]
  - Illness [Recovering/Resolving]
  - Infection [Recovering/Resolving]
  - Pneumonia [Recovering/Resolving]
  - Precancerous skin lesion [Recovering/Resolving]
  - Pyrexia [Recovering/Resolving]
  - Rash [Recovering/Resolving]
  - Spondyloarthropathy [Recovering/Resolving]
  - Swelling face [Recovering/Resolving]
